FAERS Safety Report 13784772 (Version 5)
Quarter: 2018Q1

REPORT INFORMATION
  Report Type: Spontaneous
  Country: US (occurrence: US)
  Receive Date: 20170724
  Receipt Date: 20180308
  Transmission Date: 20180508
  Serious: Yes (Hospitalization)
  Sender: FDA-Public Use
  Company Number: US-IMPAX LABORATORIES, INC-2017-IPXL-01776

PATIENT
  Age: 65 Year
  Sex: Female
  Weight: 79 kg

DRUGS (13)
  1. SINEMET [Concomitant]
     Active Substance: CARBIDOPA\LEVODOPA
     Indication: PRODUCT USED FOR UNKNOWN INDICATION
     Dosage: UNK
     Route: 065
     Dates: start: 2005
  2. PRIMAX [Concomitant]
     Indication: PRODUCT USED FOR UNKNOWN INDICATION
     Dosage: UNK
     Route: 065
  3. REQUIP [Concomitant]
     Active Substance: ROPINIROLE HYDROCHLORIDE
     Indication: PRODUCT USED FOR UNKNOWN INDICATION
     Dosage: UNK
     Route: 065
  4. RYTARY [Suspect]
     Active Substance: CARBIDOPA\LEVODOPA
     Indication: PARKINSON^S DISEASE
     Dosage: 23.75/95 MG AND 61.25/245 MG, 1 CAPSULE, 5 /DAY
     Route: 048
  5. COMTAN [Concomitant]
     Active Substance: ENTACAPONE
     Indication: PRODUCT USED FOR UNKNOWN INDICATION
     Dosage: UNK
     Route: 065
     Dates: start: 2005
  6. MIRAPEX [Concomitant]
     Active Substance: PRAMIPEXOLE DIHYDROCHLORIDE
     Indication: PRODUCT USED FOR UNKNOWN INDICATION
     Dosage: UNK
     Route: 065
  7. NUPLAZID [Concomitant]
     Active Substance: PIMAVANSERIN TARTRATE
     Indication: HALLUCINATION
     Dosage: UNK
     Route: 065
  8. METOPROLOL. [Concomitant]
     Active Substance: METOPROLOL
     Indication: PRODUCT USED FOR UNKNOWN INDICATION
     Dosage: 12.5 MG, DAILY
     Route: 065
  9. TAXOL [Concomitant]
     Active Substance: PACLITAXEL
     Indication: NEURALGIA
     Dosage: UNK
     Route: 065
  10. SYNTHROID [Concomitant]
     Active Substance: LEVOTHYROXINE SODIUM
     Indication: PRODUCT USED FOR UNKNOWN INDICATION
     Dosage: 100 ?G, UNK
     Route: 065
  11. AMANTADINE. [Concomitant]
     Active Substance: AMANTADINE HYDROCHLORIDE
     Indication: DYSKINESIA
     Dosage: UNK
     Route: 065
  12. RYTARY [Suspect]
     Active Substance: CARBIDOPA\LEVODOPA
     Dosage: UNK
     Route: 048
  13. LYRICA [Concomitant]
     Active Substance: PREGABALIN
     Indication: NEURALGIA
     Dosage: UNK
     Route: 065

REACTIONS (12)
  - Amnesia [Not Recovered/Not Resolved]
  - Patella fracture [Recovered/Resolved]
  - Somnambulism [Recovered/Resolved]
  - Hypoacusis [Unknown]
  - Tremor [Recovering/Resolving]
  - Large intestine polyp [Unknown]
  - Weight increased [Not Recovered/Not Resolved]
  - Vomiting [Not Recovered/Not Resolved]
  - Hallucination [Not Recovered/Not Resolved]
  - Nausea [Not Recovered/Not Resolved]
  - Flatulence [Not Recovered/Not Resolved]
  - Abnormal dreams [Not Recovered/Not Resolved]

NARRATIVE: CASE EVENT DATE: 201702
